FAERS Safety Report 6301359-0 (Version None)
Quarter: 2009Q3

REPORT INFORMATION
  Report Type: 
  Country: None (occurrence: None)
  Receive Date: 20090807
  Receipt Date: 20090707
  Transmission Date: 20100115
  Serious: No
  Sender: FDA-Public Use
  Company Number: US-BAYER-200912287BCC

PATIENT
  Age: 89 Year
  Sex: Male
  Weight: 79 kg

DRUGS (9)
  1. ALEVE [Suspect]
     Indication: PAIN IN EXTREMITY
     Dosage: 2 TABLETS OFF AND ON
     Route: 048
     Dates: start: 20090601
  2. FUROSEMIDE [Concomitant]
     Route: 065
  3. WARFARIN SODIUM [Concomitant]
     Dosage: 2 SUNDAY,MONDAY, WEDNESDAY,FRIDAY AND SATURDAY AND 1 TUESDAY AND THURSDAY
     Route: 065
  4. VALSARTAN [Concomitant]
     Route: 065
  5. ASPIRIN [Concomitant]
     Route: 065
  6. NITROFURANTOIN MACROCRYSTAL [Concomitant]
     Route: 065
  7. TRAVATAN [Concomitant]
     Dosage: 1 DROP IN EACH EYES
     Route: 061
  8. TYLENOL (CAPLET) [Concomitant]
     Dosage: 1 DROP IN EACH EYES
     Route: 061
  9. METOLAZONE [Concomitant]
     Route: 065

REACTIONS (1)
  - PAIN IN EXTREMITY [None]
